FAERS Safety Report 17088501 (Version 1)
Quarter: 2019Q4

REPORT INFORMATION
  Report Type: Spontaneous
  Country: MT (occurrence: MT)
  Receive Date: 20191128
  Receipt Date: 20191128
  Transmission Date: 20200122
  Serious: Yes (Hospitalization, Other)
  Sender: FDA-Public Use
  Company Number: PHHY2018MT123595

PATIENT
  Sex: Male

DRUGS (1)
  1. EXJADE [Suspect]
     Active Substance: DEFERASIROX
     Indication: CONGENITAL APLASTIC ANAEMIA
     Route: 048

REACTIONS (8)
  - Gastrointestinal haemorrhage [Unknown]
  - Gastrointestinal disorder [Not Recovered/Not Resolved]
  - Serum ferritin increased [Unknown]
  - Haematemesis [Unknown]
  - Decreased appetite [Unknown]
  - Haemorrhage [Unknown]
  - Duodenal ulcer [Unknown]
  - Helicobacter test positive [Unknown]

NARRATIVE: CASE EVENT DATE: 20180821
